FAERS Safety Report 23332849 (Version 2)
Quarter: 2024Q1

REPORT INFORMATION
  Report Type: Report from Study
  Country: DE (occurrence: DE)
  Receive Date: 20231222
  Receipt Date: 20240112
  Transmission Date: 20240409
  Serious: No
  Sender: FDA-Public Use
  Company Number: DE-SA-SAC20231218001634

PATIENT
  Age: 7 Year
  Sex: Male

DRUGS (4)
  1. CEMIPLIMAB [Suspect]
     Active Substance: CEMIPLIMAB
     Indication: Squamous cell carcinoma of skin
     Dosage: UNK
     Route: 057
  2. BEPANTHENOL [Concomitant]
     Indication: Product used for unknown indication
     Dosage: UNK
  3. VERMOX [Concomitant]
     Active Substance: MEBENDAZOLE
     Indication: Product used for unknown indication
     Dosage: 100MG 0-0- 1
  4. CETIRIZINE [Concomitant]
     Active Substance: CETIRIZINE HYDROCHLORIDE
     Indication: Product used for unknown indication
     Dosage: UNK

REACTIONS (11)
  - Anaemia of malignant disease [Recovered/Resolved]
  - Lip haemorrhage [Recovered/Resolved]
  - White blood cell count increased [Recovered/Resolved]
  - Wound secretion [Recovered/Resolved]
  - Weight increased [Unknown]
  - Listless [Recovered/Resolved]
  - Giardiasis [Recovered/Resolved]
  - Cough [Recovered/Resolved]
  - Pyrexia [Recovered/Resolved]
  - Dyspnoea [Recovered/Resolved]
  - Tonsillitis [Recovered/Resolved]
